FAERS Safety Report 23213281 (Version 1)
Quarter: 2023Q4

REPORT INFORMATION
  Report Type: Spontaneous
  Country: US (occurrence: US)
  Receive Date: 20231121
  Receipt Date: 20231121
  Transmission Date: 20240110
  Serious: Yes (Other)
  Sender: FDA-Public Use
  Company Number: US-SUN PHARMACEUTICAL INDUSTRIES LTD-2023R1-419154

PATIENT
  Age: 43 Year
  Sex: Female

DRUGS (2)
  1. ERTAPENEM [Suspect]
     Active Substance: ERTAPENEM
     Indication: Breast cellulitis
     Dosage: 1 GRAM, DAILY
     Route: 042
  2. DAPTOMYCIN [Suspect]
     Active Substance: DAPTOMYCIN
     Indication: Breast cellulitis
     Dosage: 6 MILLIGRAM/KILOGRAM, DAILY
     Route: 042

REACTIONS (2)
  - Mycobacterium abscessus infection [Recovering/Resolving]
  - Therapy cessation [Unknown]
